FAERS Safety Report 8789578 (Version 1)
Quarter: 2012Q4

REPORT INFORMATION
  Report Type: Spontaneous
  Country: US (occurrence: None)
  Receive Date: 20120905
  Receipt Date: 20120905
  Transmission Date: 20130627
  Serious: Yes (Other)
  Sender: FDA-Public Use
  Company Number: 1208-463

PATIENT

DRUGS (1)
  1. EYLEA [Suspect]

REACTIONS (2)
  - Fluid retention [None]
  - Eye disorder [None]
